FAERS Safety Report 6443735-1 (Version None)
Quarter: 2009Q4

REPORT INFORMATION
  Report Type: 
  Country: None (occurrence: None)
  Receive Date: 20091117
  Receipt Date: 20091106
  Transmission Date: 20100525
  Serious: Yes (Other)
  Sender: FDA-Public Use
  Company Number: EG-AMGEN-US374163

PATIENT
  Age: 14 Year
  Sex: Male

DRUGS (3)
  1. ENBREL [Suspect]
     Indication: DRUG USE FOR UNKNOWN INDICATION
     Dosage: NOT SPECIFIED
     Dates: start: 20090801
  2. COLCHICINE [Concomitant]
  3. CORTICOSTEROID NOS [Concomitant]

REACTIONS (2)
  - INTESTINAL HAEMORRHAGE [None]
  - INTESTINAL ULCER [None]
